FAERS Safety Report 16990411 (Version 1)
Quarter: 2019Q4

REPORT INFORMATION
  Report Type: Report from Study
  Country: JP (occurrence: JP)
  Receive Date: 20191104
  Receipt Date: 20191104
  Transmission Date: 20200122
  Serious: Yes (Other)
  Sender: FDA-Public Use
  Company Number: JP-GLAXOSMITHKLINE-JP2019GSK141144

PATIENT
  Age: 42 Year
  Sex: Female

DRUGS (2)
  1. LITHIUM. [Suspect]
     Active Substance: LITHIUM
     Indication: BIPOLAR DISORDER
     Dosage: UNK
  2. BUPROPION. [Suspect]
     Active Substance: BUPROPION
     Indication: BIPOLAR DISORDER
     Dosage: UNK

REACTIONS (6)
  - Dystonia [Unknown]
  - Mania [Unknown]
  - Disorientation [Unknown]
  - Gaze palsy [Unknown]
  - Depressed level of consciousness [Unknown]
  - Dysarthria [Unknown]
